FAERS Safety Report 18269329 (Version 1)
Quarter: 2020Q3

REPORT INFORMATION
  Report Type: Spontaneous
  Country: FR (occurrence: FR)
  Receive Date: 20200915
  Receipt Date: 20200915
  Transmission Date: 20201103
  Serious: Yes (Other)
  Sender: FDA-Public Use
  Company Number: FR-JAZZ-2020-FR-003781

PATIENT

DRUGS (3)
  1. KIDROLASE [Suspect]
     Active Substance: ASPARAGINASE
     Indication: ANGIOCENTRIC LYMPHOMA
     Dosage: 25,000 IU/M?, 8 PER CYCLE, 4 CYCLES
  2. KIDROLASE [Suspect]
     Active Substance: ASPARAGINASE
     Dosage: 9,900 IU
     Dates: start: 20161221, end: 20161221
  3. KIDROLASE [Suspect]
     Active Substance: ASPARAGINASE
     Dosage: UNKNOWN DOSE
     Dates: start: 20161122, end: 20161204

REACTIONS (2)
  - Hypersensitivity [Recovered/Resolved]
  - Therapeutic response decreased [Unknown]

NARRATIVE: CASE EVENT DATE: 20161221
